FAERS Safety Report 24065581 (Version 5)
Quarter: 2024Q3

REPORT INFORMATION
  Report Type: Spontaneous
  Country: US (occurrence: US)
  Receive Date: 20240709
  Receipt Date: 20240824
  Transmission Date: 20241017
  Serious: No
  Sender: JOHNSON AND JOHNSON
  Company Number: US-JNJFOC-20240677986

PATIENT
  Age: 6 Decade
  Sex: Female

DRUGS (4)
  1. SIMPONI ARIA [Suspect]
     Active Substance: GOLIMUMAB
     Indication: Product used for unknown indication
     Dosage: 12.50 MG/ML
     Route: 041
     Dates: start: 20240208
  2. SIMPONI ARIA [Suspect]
     Active Substance: GOLIMUMAB
     Route: 041
     Dates: start: 20240208
  3. SIMPONI ARIA [Suspect]
     Active Substance: GOLIMUMAB
     Route: 041
     Dates: start: 20240208
  4. SIMPONI ARIA [Suspect]
     Active Substance: GOLIMUMAB
     Route: 041
     Dates: start: 20240208

REACTIONS (1)
  - Drug ineffective [Unknown]
